FAERS Safety Report 13526879 (Version 3)
Quarter: 2017Q4

REPORT INFORMATION
  Report Type: Report from Study
  Country: JP (occurrence: JP)
  Receive Date: 20170509
  Receipt Date: 20171004
  Transmission Date: 20180320
  Serious: Yes (Congenital Anomaly)
  Sender: FDA-Public Use
  Company Number: JP-ASTELLAS-2017JP007532

PATIENT
  Age: 0 Day
  Sex: Male
  Weight: 2 kg

DRUGS (23)
  1. TAKEPRON [Concomitant]
     Active Substance: LANSOPRAZOLE
     Indication: FOETAL EXPOSURE DURING PREGNANCY
     Route: 064
     Dates: end: 20150705
  2. TACROLIMUS. [Suspect]
     Active Substance: TACROLIMUS
     Indication: EXPOSURE DURING BREAST FEEDING
     Route: 063
     Dates: start: 20160126, end: 20160425
  3. ERYTHROCIN                         /00020901/ [Concomitant]
     Active Substance: ERYTHROMYCIN ETHYLSUCCINATE
     Route: 064
     Dates: start: 20150529, end: 20151006
  4. FERROUS SODIUM CITRATE [Concomitant]
     Active Substance: SODIUM FERROUS CITRATE
     Indication: EXPOSURE DURING BREAST FEEDING
     Route: 063
     Dates: start: 20160126, end: 20160202
  5. IMURAN [Concomitant]
     Active Substance: AZATHIOPRINE
     Indication: FOETAL EXPOSURE DURING PREGNANCY
     Route: 064
     Dates: end: 20160125
  6. ZITHROMAC [Concomitant]
     Active Substance: AZITHROMYCIN DIHYDRATE
     Indication: FOETAL EXPOSURE DURING PREGNANCY
     Route: 064
     Dates: start: 20160123, end: 20160123
  7. POSTERISAN FORTE                   /01567801/ [Concomitant]
     Indication: EXPOSURE DURING BREAST FEEDING
     Route: 063
     Dates: start: 20160126, end: 20160129
  8. BAKTAR [Concomitant]
     Active Substance: SULFAMETHOXAZOLE\TRIMETHOPRIM
     Indication: FOETAL EXPOSURE DURING PREGNANCY
     Route: 064
     Dates: end: 20150705
  9. GLAKAY [Concomitant]
     Active Substance: MENATETRENONE
     Indication: FOETAL EXPOSURE DURING PREGNANCY
     Route: 064
     Dates: end: 20150705
  10. MAGMITT [Concomitant]
     Active Substance: MAGNESIUM OXIDE
     Indication: FOETAL EXPOSURE DURING PREGNANCY
     Route: 064
     Dates: start: 20150712, end: 20160125
  11. LUTEONIN [Concomitant]
     Route: 064
     Dates: start: 20151208, end: 20160122
  12. DICLOFENAC [Concomitant]
     Active Substance: DICLOFENAC
     Indication: EXPOSURE DURING BREAST FEEDING
     Route: 063
     Dates: start: 20160125
  13. PREDONINE [Concomitant]
     Active Substance: PREDNISOLONE
     Indication: EXPOSURE DURING BREAST FEEDING
     Route: 063
     Dates: start: 20160126, end: 20160425
  14. IMURAN [Concomitant]
     Active Substance: AZATHIOPRINE
     Indication: EXPOSURE DURING BREAST FEEDING
     Route: 063
     Dates: start: 20160126, end: 20160425
  15. CALONAL [Concomitant]
     Active Substance: ACETAMINOPHEN
     Indication: FOETAL EXPOSURE DURING PREGNANCY
     Route: 064
     Dates: start: 20151211, end: 20160122
  16. SAWACILLIN [Concomitant]
     Active Substance: AMOXICILLIN
     Indication: EXPOSURE DURING BREAST FEEDING
     Route: 063
     Dates: start: 20160126, end: 20160129
  17. TACROLIMUS. [Suspect]
     Active Substance: TACROLIMUS
     Indication: FOETAL EXPOSURE DURING PREGNANCY
     Route: 064
     Dates: end: 20160125
  18. PREDONINE [Concomitant]
     Active Substance: PREDNISOLONE
     Indication: FOETAL EXPOSURE DURING PREGNANCY
     Route: 064
     Dates: end: 20160125
  19. EDIROL [Concomitant]
     Active Substance: ELDECALCITOL
     Indication: FOETAL EXPOSURE DURING PREGNANCY
     Dosage: 0.75 UG, ONCE DAILY
     Route: 064
     Dates: end: 20150705
  20. ERYTHROCIN                         /00020901/ [Concomitant]
     Active Substance: ERYTHROMYCIN ETHYLSUCCINATE
     Indication: FOETAL EXPOSURE DURING PREGNANCY
     Route: 064
     Dates: end: 20150528
  21. MAGMITT [Concomitant]
     Active Substance: MAGNESIUM OXIDE
     Indication: EXPOSURE DURING BREAST FEEDING
     Route: 063
     Dates: start: 20160126
  22. LUTEONIN [Concomitant]
     Indication: FOETAL EXPOSURE DURING PREGNANCY
     Route: 064
     Dates: start: 20151107, end: 20151111
  23. SAWACILLIN [Concomitant]
     Active Substance: AMOXICILLIN
     Indication: FOETAL EXPOSURE DURING PREGNANCY
     Route: 064
     Dates: start: 20160125, end: 20160125

REACTIONS (2)
  - Low birth weight baby [Unknown]
  - Exposure during breast feeding [Unknown]

NARRATIVE: CASE EVENT DATE: 20160125
